FAERS Safety Report 7604312-X (Version None)
Quarter: 2011Q2

REPORT INFORMATION
  Report Type: 
  Country: None (occurrence: None)
  Receive Date: 20110630
  Receipt Date: 20110623
  Transmission Date: 20111010
  Serious: Yes (Other)
  Sender: FDA-Public Use
  Company Number: LEO-2011-00538

PATIENT
  Age: 57 Year
  Sex: Male

DRUGS (2)
  1. INNOHEP [Suspect]
     Indication: HIP ARTHROPLASTY
     Dosage: 4500 IU, SUBCUTANEOUS
     Route: 058
  2. LOVENOX [Concomitant]

REACTIONS (2)
  - RASH [None]
  - PYREXIA [None]
